FAERS Safety Report 12470760 (Version 1)
Quarter: 2016Q2

REPORT INFORMATION
  Report Type: Spontaneous
  Country: US (occurrence: None)
  Receive Date: 20160615
  Receipt Date: 20160615
  Transmission Date: 20160815
  Serious: No
  Sender: FDA-Public Use
  Company Number: None

PATIENT
  Age: 36 Year
  Sex: Female
  Weight: 58.97 kg

DRUGS (8)
  1. FISH OIL [Concomitant]
     Active Substance: FISH OIL
  2. PROBIOTIC [Concomitant]
     Active Substance: PROBIOTICS NOS
  3. SINGULAIR [Concomitant]
     Active Substance: MONTELUKAST SODIUM
  4. LEXAPRO [Concomitant]
     Active Substance: ESCITALOPRAM OXALATE
  5. VITAMIN B COMPLEX [Concomitant]
     Active Substance: CYANOCOBALAMIN\DEXPANTHENOL\NIACINAMIDE\PYRIDOXINE HYDROCHLORIDE\RIBOFLAVIN 5^-PHOSPHATE SODIUM\THIAMINE HYDROCHLORIDE\VITAMIN B COMPLEX
  6. ZECUITY [Suspect]
     Active Substance: SUMATRIPTAN SUCCINATE
     Indication: MIGRAINE
     Dosage: 1 PATCH(ES)  APPLIED AS MEDICATED PATCH TO SKIN
     Dates: start: 20160614, end: 20160614
  7. MULTIVITAMINS [Concomitant]
     Active Substance: VITAMINS
  8. IRON [Concomitant]
     Active Substance: IRON

REACTIONS (2)
  - Rash erythematous [None]
  - Pain in extremity [None]

NARRATIVE: CASE EVENT DATE: 20160614
